FAERS Safety Report 20202510 (Version 3)
Quarter: 2024Q2

REPORT INFORMATION
  Report Type: Spontaneous
  Country: IE (occurrence: IE)
  Receive Date: 20211218
  Receipt Date: 20240618
  Transmission Date: 20240716
  Serious: Yes (Life-Threatening, Hospitalization, Disabling, Other)
  Sender: FDA-Public Use
  Company Number: IE-GSKCCFEMEA-Case-01365530_AE-52376

PATIENT
  Age: 42 Year
  Sex: Male

DRUGS (21)
  1. METFORMIN [Suspect]
     Active Substance: METFORMIN HYDROCHLORIDE
     Indication: Type 2 diabetes mellitus
     Dosage: 1000 MILLIGRAM
     Route: 065
  2. METFORMIN [Suspect]
     Active Substance: METFORMIN HYDROCHLORIDE
     Dosage: 500 MILLIGRAM
     Route: 065
  3. FLUTICASONE FUROATE [Suspect]
     Active Substance: FLUTICASONE FUROATE
     Indication: Product used for unknown indication
     Dosage: 27.5 MILLIGRAM
     Route: 065
     Dates: start: 20201125, end: 20210816
  4. PREDNISOLONE [Suspect]
     Active Substance: PREDNISOLONE
     Indication: Product used for unknown indication
     Dosage: 6 DOSAGE FORM, ONCE A DAY
     Route: 065
  5. PREDNISOLONE [Suspect]
     Active Substance: PREDNISOLONE
     Dosage: 30 MILLIGRAM, ONCE A DAY
     Route: 065
     Dates: start: 20210428
  6. ACETAMINOPHEN\CAFFEINE\CODEINE PHOSPHATE [Suspect]
     Active Substance: ACETAMINOPHEN\CAFFEINE\CODEINE PHOSPHATE
     Indication: Analgesic therapy
     Dosage: 2 DOSAGE FORM,
     Route: 065
     Dates: start: 20210828
  7. ACETAMINOPHEN\CAFFEINE\CODEINE PHOSPHATE [Suspect]
     Active Substance: ACETAMINOPHEN\CAFFEINE\CODEINE PHOSPHATE
     Dosage: 2 DOSAGE FORM
     Route: 065
     Dates: start: 20210311
  8. ACETAMINOPHEN\CAFFEINE\CODEINE PHOSPHATE [Suspect]
     Active Substance: ACETAMINOPHEN\CAFFEINE\CODEINE PHOSPHATE
     Dosage: 2 DOSAGE FORM
     Route: 065
     Dates: start: 20211101
  9. ACETAMINOPHEN\CAFFEINE\CODEINE PHOSPHATE [Suspect]
     Active Substance: ACETAMINOPHEN\CAFFEINE\CODEINE PHOSPHATE
     Dosage: 2 DOSAGE FORM
     Route: 065
     Dates: start: 20210706
  10. ACETAMINOPHEN\CAFFEINE\CODEINE PHOSPHATE [Suspect]
     Active Substance: ACETAMINOPHEN\CAFFEINE\CODEINE PHOSPHATE
     Dosage: 2 DOSAGE FORM,
     Route: 065
     Dates: start: 20210408
  11. ACETAMINOPHEN\CAFFEINE\CODEINE PHOSPHATE [Suspect]
     Active Substance: ACETAMINOPHEN\CAFFEINE\CODEINE PHOSPHATE
     Dosage: 2 DOSAGE FORM,
     Route: 065
     Dates: start: 20201125
  12. ACETAMINOPHEN\CAFFEINE\CODEINE PHOSPHATE [Suspect]
     Active Substance: ACETAMINOPHEN\CAFFEINE\CODEINE PHOSPHATE
     Dosage: 2 DOSAGE FORM,
     Route: 065
     Dates: start: 20210217
  13. Astilin [Concomitant]
     Indication: Product used for unknown indication
     Dosage: 100 MILLIGRAM, ONCE A DAY
     Route: 065
  14. Anxicalm [Concomitant]
     Indication: Product used for unknown indication
     Dosage: 2 MILLIGRAM
     Route: 065
  15. DEXKETOPROFEN TROMETAMOL [Concomitant]
     Active Substance: DEXKETOPROFEN TROMETAMOL
     Indication: Product used for unknown indication
     Dosage: 25 MILLIGRAM,
     Route: 065
  16. DIFENE [Concomitant]
     Active Substance: DICLOFENAC SODIUM
     Indication: Product used for unknown indication
     Dosage: UNK, TWO TIMES A DAY
     Route: 065
  17. AMITRIPTYLINE [Concomitant]
     Active Substance: AMITRIPTYLINE
     Indication: Product used for unknown indication
     Dosage: 10 MILLIGRAM, ONCE A DAY
     Route: 065
  18. DIAZEPAM [Concomitant]
     Active Substance: DIAZEPAM
     Indication: Product used for unknown indication
     Dosage: 1 DOSAGE FORM, DAILY (AS NEEDED)
     Route: 065
  19. DICLOFENAC SODIUM [Concomitant]
     Active Substance: DICLOFENAC\DICLOFENAC SODIUM
     Indication: Product used for unknown indication
     Dosage: 75 MILLIGRAM, TWO TIMES A DAY
     Route: 065
  20. DOXYCYCLINE PINEWOOD [Concomitant]
     Indication: Product used for unknown indication
     Dosage: 100 MILLIGRAM, TWO TIMES A DAY
     Route: 065
  21. DOXYCYCLINE PINEWOOD [Concomitant]
     Dosage: 100 MILLIGRAM, ONCE A DAY
     Route: 065

REACTIONS (11)
  - Type 2 diabetes mellitus [Not Recovered/Not Resolved]
  - Paraesthesia [Unknown]
  - Polydipsia [Unknown]
  - Food craving [Unknown]
  - Malaise [Unknown]
  - Nausea [Unknown]
  - Hyperhidrosis [Unknown]
  - Fungal infection [Unknown]
  - Feeling hot [Unknown]
  - Blood glucose increased [Unknown]
  - Drug ineffective [Unknown]

NARRATIVE: CASE EVENT DATE: 20210801
